FAERS Safety Report 11783054 (Version 1)
Quarter: 2015Q4

REPORT INFORMATION
  Report Type: Spontaneous
  Country: US (occurrence: US)
  Receive Date: 20151127
  Receipt Date: 20151127
  Transmission Date: 20160305
  Serious: Yes (Death)
  Sender: FDA-Public Use
  Company Number: US-MEDA-2015110109

PATIENT
  Age: 57 Year
  Sex: Male

DRUGS (6)
  1. ACETAMINOPHEN. [Suspect]
     Active Substance: ACETAMINOPHEN
  2. HYDROMORPHONE [Suspect]
     Active Substance: HYDROMORPHONE
  3. ETHANOL [Suspect]
     Active Substance: ALCOHOL
  4. ZOLPIDEM [Suspect]
     Active Substance: ZOLPIDEM\ZOLPIDEM TARTRATE
  5. GABAPENTIN. [Suspect]
     Active Substance: GABAPENTIN
  6. METAXALONE. [Suspect]
     Active Substance: METAXALONE

REACTIONS (1)
  - Death [Fatal]
